FAERS Safety Report 7413914-5 (Version None)
Quarter: 2011Q2

REPORT INFORMATION
  Report Type: 
  Country: None (occurrence: None)
  Receive Date: 20110414
  Receipt Date: 20110406
  Transmission Date: 20111010
  Serious: Yes (Hospitalization, Other)
  Sender: FDA-Public Use
  Company Number: US-BIOGENIDEC-2011BI009053

PATIENT
  Age: 51 Year
  Sex: Female

DRUGS (2)
  1. ACYCLOVIR [Concomitant]
  2. AVONEX [Suspect]
     Indication: MULTIPLE SCLEROSIS
     Route: 030
     Dates: start: 20010101

REACTIONS (7)
  - BREAST CANCER METASTATIC [None]
  - CONVULSION [None]
  - MULTIPLE SCLEROSIS RELAPSE [None]
  - STAPHYLOCOCCAL INFECTION [None]
  - COGNITIVE DISORDER [None]
  - GASTROINTESTINAL DISORDER [None]
  - BLADDER DISORDER [None]
